FAERS Safety Report 7825889-5 (Version None)
Quarter: 2011Q4

REPORT INFORMATION
  Report Type: 
  Country: None (occurrence: None)
  Receive Date: 20111019
  Receipt Date: 20111010
  Transmission Date: 20120403
  Serious: Yes (Hospitalization)
  Sender: FDA-Public Use
  Company Number: IT-ASTRAZENECA-2011SE49227

PATIENT
  Age: 810 Day
  Sex: Female

DRUGS (2)
  1. CRESTOR [Suspect]
     Route: 048
     Dates: start: 20110809, end: 20110809
  2. SOTALOL HCL [Suspect]
     Route: 048
     Dates: start: 20110809, end: 20110809

REACTIONS (4)
  - ASPARTATE AMINOTRANSFERASE INCREASED [None]
  - HYPERTRANSAMINASAEMIA [None]
  - ACCIDENTAL DRUG INTAKE BY CHILD [None]
  - ALANINE AMINOTRANSFERASE INCREASED [None]
